FAERS Safety Report 7955515-6 (Version None)
Quarter: 2011Q4

REPORT INFORMATION
  Report Type: 
  Country: None (occurrence: None)
  Receive Date: 20111202
  Receipt Date: 20111128
  Transmission Date: 20120403
  Serious: Yes (Hospitalization)
  Sender: FDA-Public Use
  Company Number: US-AMGEN-USASP2011062749

PATIENT
  Age: 64 Year
  Sex: Female

DRUGS (5)
  1. PREDNISONE TAB [Concomitant]
  2. CALCIUM [Concomitant]
  3. IMURAN [Concomitant]
     Indication: FUNCTIONAL GASTROINTESTINAL DISORDER
  4. PROLIA [Suspect]
     Indication: OSTEOPOROSIS POSTMENOPAUSAL
     Dosage: 60 MG, Q6MO
     Dates: start: 20110801, end: 20110901
  5. FOSAMAX [Concomitant]
     Dosage: UNK

REACTIONS (4)
  - HYPOAESTHESIA [None]
  - BLOOD MAGNESIUM DECREASED [None]
  - BLOOD POTASSIUM DECREASED [None]
  - BLOOD CALCIUM DECREASED [None]
